FAERS Safety Report 8646365 (Version 2)
Quarter: 2014Q1

REPORT INFORMATION
  Report Type: Spontaneous
  Country: US (occurrence: None)
  Receive Date: 20120323
  Receipt Date: 20130305
  Transmission Date: 20141002
  Serious: Yes (Hospitalization, Other)
  Sender: FDA-Public Use
  Company Number: 163-21880-11101454

PATIENT
  Age: 78 Year
  Sex: Female
  Weight: 68.04 kg

DRUGS (15)
  1. REVLIMID (LENALIDOMIDE) (CAPSULES) [Suspect]
     Indication: PLASMA CELL MYELOMA
     Dosage: 10 MG, DAILY X 21 / 28 DAYS, PO
     Route: 048
     Dates: start: 20110527
  2. DEXAMETHASONE [Concomitant]
  3. AMLODIPINE [Concomitant]
  4. BAYER (ACETYLSALICYLIC ACID) (UNKNOWN) [Concomitant]
  5. CALCITRIOL (CALCITRIOL) (UNKNOWN) [Concomitant]
  6. NOVOLOG (INSULIN ASPART) (UNKNOWN) [Concomitant]
  7. OMEPRAZOLE [Concomitant]
  8. ISOSORBIDE (ISOSORBIDE) (UNKNOWN) [Concomitant]
  9. LANTUS [Concomitant]
  10. NITROGLYCERIN [Concomitant]
  11. OXYCODONE (OXYCODONE) (UNKNOWN) (OXYCODONE) [Concomitant]
  12. SIMVASTATIN [Concomitant]
  13. COREG (CARVEDILOL) [Concomitant]
  14. FUROSEMIDE [Concomitant]
  15. HYZAAR [Concomitant]

REACTIONS (1)
  - Renal failure [None]
